FAERS Safety Report 16005632 (Version 2)
Quarter: 2020Q3

REPORT INFORMATION
  Report Type: Report from Study
  Country: US (occurrence: US)
  Receive Date: 20190226
  Receipt Date: 20200730
  Transmission Date: 20201102
  Serious: Yes (Hospitalization, Other)
  Sender: FDA-Public Use
  Company Number: US-SA-2019SA050313

PATIENT

DRUGS (3)
  1. AZITHROMYCIN ANHYDROUS. [Concomitant]
     Active Substance: AZITHROMYCIN ANHYDROUS
     Dosage: UNK
  2. DRONEDARONE [Suspect]
     Active Substance: DRONEDARONE
     Indication: ATRIAL FIBRILLATION
     Dosage: 400 MG, BID
     Route: 048
  3. ELIQUIS [Concomitant]
     Active Substance: APIXABAN
     Dosage: UNK

REACTIONS (8)
  - General physical health deterioration [Unknown]
  - Gastrointestinal disorder [Unknown]
  - Product residue present [Unknown]
  - Shoulder operation [Recovered/Resolved]
  - Neuroendocrine carcinoma of the skin [Recovered/Resolved]
  - Lymphoedema [Not Recovered/Not Resolved]
  - Crohn^s disease [Unknown]
  - Surgery [Unknown]

NARRATIVE: CASE EVENT DATE: 20180827
